FAERS Safety Report 26158385 (Version 1)
Quarter: 2025Q4

REPORT INFORMATION
  Report Type: Spontaneous
  Country: US (occurrence: US)
  Receive Date: 20251215
  Receipt Date: 20251215
  Transmission Date: 20260118
  Serious: No
  Sender: Harrow Health
  Company Number: US-HARROW-HAR-2025-US-01394

PATIENT
  Age: 76 Year
  Sex: Female

DRUGS (1)
  1. VEVYE [Suspect]
     Active Substance: CYCLOSPORINE
     Indication: Dry eye
     Dosage: ONCE IN THE MORNING AND AGAIN AT EVENING
     Dates: start: 20251016, end: 20251024

REACTIONS (2)
  - Drug ineffective [Unknown]
  - Eye pain [Unknown]

NARRATIVE: CASE EVENT DATE: 20251016
